FAERS Safety Report 4414195-7 (Version None)
Quarter: 2004Q3

REPORT INFORMATION
  Report Type: 
  Country: None (occurrence: None)
  Receive Date: 20040728
  Receipt Date: 20040716
  Transmission Date: 20050211
  Serious: Yes (Hospitalization, Disabling)
  Sender: FDA-Public Use
  Company Number: HQWYE182016JUL04

PATIENT
  Age: 64 Year
  Sex: Female

DRUGS (9)
  1. CORDARONE [Suspect]
     Indication: ATRIAL FIBRILLATION
     Dosage: SEE IMAGE
     Route: 048
     Dates: start: 20031128, end: 20031201
  2. CORDARONE [Suspect]
     Indication: ATRIAL FIBRILLATION
     Dosage: SEE IMAGE
     Route: 048
     Dates: start: 20031201, end: 20040211
  3. CORDARONE [Suspect]
     Indication: ATRIAL FIBRILLATION
     Dosage: SEE IMAGE
     Route: 048
     Dates: start: 20040212, end: 20040218
  4. LOSARTAN (LOSARTAN) [Concomitant]
  5. BUDESONIDE (BUDESONIDE) [Concomitant]
  6. WARFARIN (WARFARIN) [Concomitant]
  7. FUROSEMIDE [Concomitant]
  8. BISOPROLOL FUMARATE [Concomitant]
  9. DIGOXIN [Concomitant]

REACTIONS (5)
  - CONSTIPATION [None]
  - DRUG EFFECT DECREASED [None]
  - EYE IRRITATION [None]
  - NEUROPATHY [None]
  - PAIN [None]
